FAERS Safety Report 19467193 (Version 1)
Quarter: 2021Q2

REPORT INFORMATION
  Report Type: Spontaneous
  Country: US (occurrence: US)
  Receive Date: 20210625
  Receipt Date: 20210625
  Transmission Date: 20210717
  Serious: Yes (Disabling)
  Sender: FDA-Public Use
  Company Number: None

PATIENT
  Age: 44 Year
  Sex: Female

DRUGS (11)
  1. AMITRIPTYLINE 10MG [Concomitant]
     Active Substance: AMITRIPTYLINE
  2. MOTRIN 400?800MG [Concomitant]
  3. PEPCID 40MG [Concomitant]
  4. ALLEGRA 180MG [Concomitant]
  5. BENADRYL 50MG [Concomitant]
  6. ATIVAN 0.5MG [Concomitant]
  7. XOLAIR [Suspect]
     Active Substance: OMALIZUMAB
     Indication: IDIOPATHIC ANGIOEDEMA
     Dates: start: 20210623, end: 20210623
  8. VENLAFAXINE ER  225MG [Concomitant]
  9. SINGULAIR [Concomitant]
     Active Substance: MONTELUKAST SODIUM
  10. XOLAIR [Suspect]
     Active Substance: OMALIZUMAB
     Indication: ANAPHYLACTIC REACTION
     Dates: start: 20210623, end: 20210623
  11. ACETAMINOPHEN XS [Concomitant]

REACTIONS (6)
  - Lip swelling [None]
  - Abdominal discomfort [None]
  - Swollen tongue [None]
  - Fatigue [None]
  - Head discomfort [None]
  - Nausea [None]

NARRATIVE: CASE EVENT DATE: 20210623
